FAERS Safety Report 5338795-5 (Version None)
Quarter: 2007Q2

REPORT INFORMATION
  Report Type: 
  Country: None (occurrence: None)
  Receive Date: 20070328
  Receipt Date: 20060818
  Transmission Date: 20071010
  Serious: Yes (Hospitalization)
  Sender: FDA-Public Use
  Company Number: K200601093

PATIENT
  Age: 65 Year
  Sex: Female
  Weight: 65.8 kg

DRUGS (2)
  1. ALTACE [Suspect]
     Indication: HYPERTENSION
     Dosage: SEE IMAGE
     Route: 048
     Dates: start: 19960101, end: 20060731
  2. ALTACE [Suspect]
     Indication: HYPERTENSION
     Dosage: SEE IMAGE
     Route: 048
     Dates: start: 20060801, end: 20060811

REACTIONS (2)
  - ANGIOEDEMA [None]
  - LARYNGEAL OEDEMA [None]
